FAERS Safety Report 18290952 (Version 11)
Quarter: 2020Q4

REPORT INFORMATION
  Report Type: Report from Study
  Country: US (occurrence: US)
  Receive Date: 20200921
  Receipt Date: 20201215
  Transmission Date: 20210113
  Serious: Yes (Hospitalization)
  Sender: FDA-Public Use
  Company Number: NVSC2020US254534

PATIENT
  Age: 32 Year
  Sex: Female
  Weight: 77.1 kg

DRUGS (5)
  1. TREPROSTINIL. [Suspect]
     Active Substance: TREPROSTINIL
     Dosage: UNK (59 NG/KG/MIN) (CONTINUOUS)
     Route: 042
  2. TREPROSTINIL. [Suspect]
     Active Substance: TREPROSTINIL
     Dosage: UNK (59 NG/KG/MIN)
     Route: 042
  3. TREPROSTINIL. [Suspect]
     Active Substance: TREPROSTINIL
     Indication: PULMONARY ARTERIAL HYPERTENSION
     Dosage: UNK (51 NG/KG/MIN)
     Route: 042
     Dates: start: 20200326
  4. TADALAFIL. [Concomitant]
     Active Substance: TADALAFIL
     Indication: PRODUCT USED FOR UNKNOWN INDICATION
     Dosage: UNK
     Route: 065
  5. REMODULIN [Concomitant]
     Active Substance: TREPROSTINIL
     Indication: PRODUCT USED FOR UNKNOWN INDICATION
     Dosage: UNK
     Route: 065

REACTIONS (13)
  - COVID-19 pneumonia [Unknown]
  - Tachycardia [Unknown]
  - Device dislocation [Unknown]
  - Blood potassium decreased [Unknown]
  - Iron deficiency [Unknown]
  - Syncope [Unknown]
  - Infection [Unknown]
  - Vascular device infection [Unknown]
  - Blood calcium decreased [Unknown]
  - Hypokalaemia [Unknown]
  - Fluid retention [Unknown]
  - Suspected COVID-19 [Unknown]
  - Blood iron decreased [Unknown]

NARRATIVE: CASE EVENT DATE: 20200915
